FAERS Safety Report 9686114 (Version 5)
Quarter: 2014Q1

REPORT INFORMATION
  Report Type: Report from Study
  Country: US (occurrence: US)
  Receive Date: 20131113
  Receipt Date: 20140303
  Transmission Date: 20141002
  Serious: Yes (Hospitalization)
  Sender: FDA-Public Use
  Company Number: US-ROCHE-1273311

PATIENT
  Age: 63 Year
  Sex: Male
  Weight: 43.5 kg

DRUGS (64)
  1. BEVACIZUMAB [Suspect]
     Indication: NON-SMALL CELL LUNG CANCER
     Dosage: DATE OF LAST DOSE (755.2MG) PRIOR TO SYMPTOMATIC PNEUMOTHORAX, PLEURAL EMPYEMA, INCREASED RIGHT LUNG
     Route: 042
     Dates: start: 20130912
  2. CARBOPLATIN [Suspect]
     Indication: NON-SMALL CELL LUNG CANCER
     Dosage: DATE OF LAST DOSE PRIOR (663MG) TO SYMPYOMATIC PNEUMOTHORAX, PLEURAL EMPYEMA, INCREASED RIGHT LUNG E
     Route: 042
     Dates: start: 20130912
  3. PACLITAXEL [Suspect]
     Indication: NON-SMALL CELL LUNG CANCER
     Dosage: DATE OF LAST DOSE (304MG) PRIOR TO SYMPTOMATIC PNEUMOTHORAX, PLEURAL EMPYEMA, INCREASED RIGHT LUNG E
     Route: 042
     Dates: start: 20130912
  4. GLUCOTROL [Concomitant]
     Indication: DIABETES MELLITUS
     Route: 048
     Dates: start: 20130720
  5. DULCOLAX TABLETS [Concomitant]
     Indication: CONSTIPATION
     Route: 048
     Dates: start: 20130821
  6. ZOFRAN [Concomitant]
     Indication: NAUSEA
     Route: 048
     Dates: start: 20130817, end: 20130911
  7. ZOFRAN [Concomitant]
     Route: 048
     Dates: start: 20130912
  8. ZOFRAN [Concomitant]
     Route: 042
     Dates: start: 20130928, end: 20130928
  9. ZOFRAN [Concomitant]
     Route: 042
     Dates: start: 20131028, end: 20131028
  10. ZOFRAN [Concomitant]
     Route: 042
     Dates: start: 20131107, end: 20131113
  11. ZOFRAN [Concomitant]
     Route: 042
     Dates: start: 20131011, end: 20131021
  12. MOTRIN [Concomitant]
     Indication: PAIN
     Route: 048
     Dates: start: 20130810
  13. COLACE [Concomitant]
     Indication: CONSTIPATION
     Route: 048
     Dates: start: 20130703
  14. FENTANYL [Concomitant]
     Indication: PAIN
     Route: 062
     Dates: start: 20130726
  15. FENTANYL [Concomitant]
     Route: 042
     Dates: start: 20131108, end: 20131108
  16. PEPCID [Concomitant]
     Indication: PROPHYLAXIS
     Route: 048
     Dates: start: 20130725, end: 20130820
  17. LISINOPRIL [Concomitant]
     Indication: DIABETES MELLITUS
     Route: 048
     Dates: start: 20100306
  18. METFORMIN [Concomitant]
     Indication: DIABETES MELLITUS
     Route: 048
     Dates: start: 20100206
  19. ASPIRIN [Concomitant]
     Indication: PROPHYLAXIS
     Route: 048
     Dates: start: 2012
  20. DILAUDID [Concomitant]
     Indication: PAIN
     Route: 048
     Dates: start: 20130731
  21. DILAUDID [Concomitant]
     Route: 042
     Dates: start: 20131028, end: 20131102
  22. DILAUDID [Concomitant]
     Route: 048
     Dates: start: 20130731
  23. DILAUDID [Concomitant]
     Route: 042
     Dates: start: 20131108, end: 20131111
  24. DILAUDID [Concomitant]
     Route: 042
     Dates: start: 20131011, end: 20131020
  25. DILAUDID [Concomitant]
     Route: 042
     Dates: start: 20131015
  26. NORMAL SALINE [Concomitant]
     Route: 042
     Dates: start: 20131028, end: 20131102
  27. NORMAL SALINE [Concomitant]
     Route: 042
     Dates: start: 20131110, end: 20131113
  28. NORMAL SALINE [Concomitant]
     Route: 042
     Dates: start: 20131015, end: 20131015
  29. NORMAL SALINE [Concomitant]
     Route: 042
     Dates: start: 20131011, end: 20131021
  30. XYLOCAINE [Concomitant]
     Route: 050
     Dates: start: 20131101, end: 20131101
  31. CHLORHEXIDINE GLUCONATE [Concomitant]
     Route: 061
     Dates: start: 20131101, end: 20131102
  32. CHLORHEXIDINE GLUCONATE [Concomitant]
     Route: 048
     Dates: start: 20131029, end: 20131102
  33. MIRALAX [Concomitant]
     Indication: CONSTIPATION
     Route: 048
     Dates: start: 20131029
  34. MIRALAX [Concomitant]
     Route: 048
     Dates: start: 20131011
  35. MS CONTIN [Concomitant]
     Route: 048
     Dates: start: 20131029, end: 20131102
  36. ATROVENT NEBULIZER [Concomitant]
     Indication: DYSPNOEA
     Route: 055
     Dates: start: 20131029, end: 20131102
  37. ATROVENT NEBULIZER [Concomitant]
     Route: 055
     Dates: start: 20131107, end: 20131107
  38. ATROVENT NEBULIZER [Concomitant]
     Route: 055
     Dates: start: 20131013, end: 20131122
  39. INSULIN [Concomitant]
     Indication: HYPERGLYCAEMIA
     Route: 058
     Dates: start: 20131028, end: 20131102
  40. LOVENOX [Concomitant]
     Indication: PROPHYLAXIS
     Route: 058
     Dates: start: 20131028, end: 20131102
  41. LOVENOX [Concomitant]
     Route: 058
     Dates: start: 20131011, end: 20131114
  42. AZTREONAM [Concomitant]
     Indication: EMPYEMA
     Route: 042
     Dates: start: 20131028, end: 20131031
  43. TYGACIL [Concomitant]
     Indication: INFECTIOUS PLEURAL EFFUSION
     Route: 042
     Dates: start: 20131109, end: 20131113
  44. TYGACIL [Concomitant]
     Route: 042
     Dates: start: 20131108, end: 20131118
  45. PROTONIX (UNITED STATES) [Concomitant]
     Indication: PROPHYLAXIS
     Route: 048
     Dates: start: 20131029
  46. PROTONIX (UNITED STATES) [Concomitant]
     Route: 048
     Dates: start: 20131012
  47. DOXYCYCLINE [Concomitant]
     Indication: EMPYEMA
     Route: 042
     Dates: start: 20131108, end: 20131108
  48. DEXTROSE/SODIUM CHLORIDE [Concomitant]
     Dosage: D5-NACL 0.45
     Route: 042
     Dates: start: 20131107, end: 20131108
  49. LACTULOSE [Concomitant]
     Indication: CONSTIPATION
     Route: 048
     Dates: start: 20131107, end: 20131113
  50. ZOLOFT [Concomitant]
     Indication: DEPRESSION
     Route: 048
     Dates: start: 20131102
  51. HEPARIN [Concomitant]
     Indication: PROPHYLAXIS
     Dosage: 5000 UNITS
     Route: 058
     Dates: start: 20131107, end: 20131113
  52. IOHEXOL [Concomitant]
     Route: 048
     Dates: start: 20131030, end: 20131030
  53. PROVENTIL [Concomitant]
     Indication: DYSPNOEA
     Route: 055
     Dates: start: 20131029, end: 20131102
  54. HUMULIN [Concomitant]
     Dosage: SLIDING SCALE
     Route: 058
     Dates: start: 20131011, end: 20131022
  55. MORPHINE SR [Concomitant]
     Indication: CHEST PAIN
     Route: 048
     Dates: start: 20131021
  56. MORPHINE SR [Concomitant]
     Route: 042
     Dates: start: 20131020
  57. RINGERS LACTATE [Concomitant]
     Route: 042
     Dates: start: 20131015, end: 20131015
  58. DIPRIVAN [Concomitant]
     Dosage: 1000MG/100CC
     Route: 042
     Dates: start: 20131015, end: 20131015
  59. CLEOCIN [Concomitant]
     Indication: MEDIASTINOSCOPY
     Route: 042
     Dates: start: 20131015, end: 20131015
  60. BUPIVACAINE [Concomitant]
     Route: 042
     Dates: start: 20131015, end: 20131015
  61. EPINEPHRINE [Concomitant]
     Dosage: 1:2000,000, GIVEN WITH BUPIVACAINE
     Route: 042
     Dates: start: 20131015, end: 20131015
  62. MYLICON [Concomitant]
     Route: 048
     Dates: start: 20131014, end: 20131021
  63. MAGNESIUM SULFATE [Concomitant]
     Indication: HYPOMAGNESAEMIA
     Route: 042
     Dates: start: 20131012, end: 20131012
  64. PLACEBO [Suspect]
     Indication: NON-SMALL CELL LUNG CANCER
     Dosage: DATE OF LAST DOSE PRIOR TO SYMPTOMATIC PNEUMOTHORAX, PLEURAL EMPYEMA, INCREASED RIGHT LUNG EMPYEMA:
     Route: 048
     Dates: start: 20130912

REACTIONS (4)
  - Empyema [Recovered/Resolved]
  - Infectious pleural effusion [Recovering/Resolving]
  - Pneumothorax [Recovered/Resolved]
  - Dyspnoea [Unknown]
